FAERS Safety Report 20770157 (Version 1)
Quarter: 2022Q2

REPORT INFORMATION
  Report Type: Report from Study
  Country: US (occurrence: US)
  Receive Date: 20220429
  Receipt Date: 20220429
  Transmission Date: 20220720
  Serious: Yes (Hospitalization, Other)
  Sender: FDA-Public Use
  Company Number: US-BRISTOL-MYERS SQUIBB COMPANY-2022-015634

PATIENT
  Age: 85 Year
  Sex: Female
  Weight: 78 kg

DRUGS (1)
  1. REVLIMID [Suspect]
     Active Substance: LENALIDOMIDE
     Indication: 5q minus syndrome
     Route: 065

REACTIONS (5)
  - COVID-19 [Unknown]
  - Gastrointestinal infection [Unknown]
  - Kidney infection [Unknown]
  - Dementia [Unknown]
  - Dementia Alzheimer^s type [Unknown]
